FAERS Safety Report 20478550 (Version 2)
Quarter: 2022Q3

REPORT INFORMATION
  Report Type: Report from Study
  Country: US (occurrence: US)
  Receive Date: 20220216
  Receipt Date: 20220818
  Transmission Date: 20221027
  Serious: Yes (Other)
  Sender: FDA-Public Use
  Company Number: US-ALNYLAM PHARMACEUTICALS, INC.-ALN-2022-000574

PATIENT

DRUGS (3)
  1. OXLUMO [Suspect]
     Active Substance: LUMASIRAN
     Indication: Primary hyperoxaluria
     Dosage: WEIGHT BASE DOSING, MONTHLY
     Route: 058
     Dates: start: 20210506
  2. OXLUMO [Suspect]
     Active Substance: LUMASIRAN
     Dosage: WEIGT BASE DOSING, MONTHLY
     Route: 058
     Dates: start: 20220128
  3. OXLUMO [Suspect]
     Active Substance: LUMASIRAN
     Dosage: WEIGT BASE DOSING, MONTHLY
     Route: 058
     Dates: start: 20220726

REACTIONS (2)
  - Uterine cancer [Unknown]
  - Urine oxalate increased [Unknown]
